FAERS Safety Report 8653320 (Version 2)
Quarter: 2012Q4

REPORT INFORMATION
  Report Type: 
  Country: TR (occurrence: TR)
  Receive Date: 20120706
  Receipt Date: 20120910
  Transmission Date: 20130627
  Serious: Yes (Other)
  Sender: FDA-Public Use
  Company Number: TR-GILEAD-2012-0057487

PATIENT

DRUGS (2)
  1. VIREAD [Suspect]
     Indication: PRODUCT USED FOR UNKNOWN INDICATION
     Dosage: UNK
  2. VIREAD [Suspect]
     Dosage: UNK
     Route: 063

REACTIONS (2)
  - Nervous system disorder [Unknown]
  - Exposure during breast feeding [Unknown]
